FAERS Safety Report 9705822 (Version 1)
Quarter: 2013Q4

REPORT INFORMATION
  Report Type: Spontaneous
  Country: US (occurrence: US)
  Receive Date: 20131122
  Receipt Date: 20131122
  Transmission Date: 20140711
  Serious: No
  Sender: FDA-Public Use
  Company Number: US-GILEAD-2008-0018089

PATIENT
  Age: 62 Year
  Sex: Female
  Weight: 106.59 kg

DRUGS (12)
  1. LETAIRIS [Suspect]
     Indication: PULMONARY ARTERIAL HYPERTENSION
     Route: 048
     Dates: start: 20080827
  2. NORVASC [Concomitant]
     Dosage: AS DIRECTED
     Route: 048
  3. ASPIRIN [Concomitant]
     Dosage: AS DIRECTED
     Route: 048
  4. VASOTEC [Concomitant]
     Dosage: AS DIRECTED
     Route: 048
  5. ULTRACET [Concomitant]
     Dosage: AS DIRECTED
     Route: 048
  6. ULTRAM [Concomitant]
     Dosage: AS DIRECTED
     Route: 048
  7. LYRICA [Concomitant]
     Dosage: AS DIRECTED
     Route: 048
  8. RESTORIL [Concomitant]
     Dosage: AS DIRECTED
     Route: 048
  9. MOBIC [Concomitant]
     Dosage: AS DIRECTED
     Route: 048
  10. PREMARIN [Concomitant]
     Dosage: AS DIRECTED
     Route: 048
  11. PREDNISONE [Concomitant]
     Dosage: AS DIRECTED
     Route: 048
  12. FOLIC ACID [Concomitant]
     Dosage: AS DIRECTED
     Route: 048

REACTIONS (3)
  - Nausea [None]
  - Diarrhoea [None]
  - Local swelling [None]
